FAERS Safety Report 5995510-X (Version None)
Quarter: 2008Q4

REPORT INFORMATION
  Report Type: 
  Country: None (occurrence: None)
  Receive Date: 20081210
  Receipt Date: 20081128
  Transmission Date: 20090506
  Serious: Yes (Hospitalization)
  Sender: FDA-Public Use
  Company Number: DSU-2008-02092

PATIENT
  Age: 61 Year
  Sex: Female

DRUGS (4)
  1. OLMESARTAN MEDOXOMIL [Suspect]
     Indication: HYPERTENSION
     Dosage: 80 MG (20 MG 2 TABS IN THE AM AND 2 TABS IN THE PM), PER ORAL; (40 MQ), PER ORAL
     Route: 048
  2. ASAWIN (ACETYLSALICYLIC ACID)(ACETYLSALICYLIC ACID) [Concomitant]
  3. FIBRA (FIBER)(FIBRE, DIETARY)(FIBRE, DIETARY) [Concomitant]
  4. VENOSTASIN (THIAMINE HYDROCHLORIDE, AESCULUS HIPPOCASTANUM EXTRACT) (T [Concomitant]

REACTIONS (2)
  - DISEASE RECURRENCE [None]
  - HYPERTENSION [None]
